FAERS Safety Report 25796270 (Version 6)
Quarter: 2025Q4

REPORT INFORMATION
  Report Type: Spontaneous
  Country: US (occurrence: US)
  Receive Date: 20250912
  Receipt Date: 20251023
  Transmission Date: 20260117
  Serious: Yes (Other)
  Sender: PFIZER
  Company Number: US-PFIZER INC-202500177792

PATIENT
  Age: 29 Year
  Sex: Female
  Weight: 48.08 kg

DRUGS (1)
  1. BICILLIN L-A [Suspect]
     Active Substance: PENICILLIN G BENZATHINE
     Indication: Syphilis
     Dosage: UNK

REACTIONS (4)
  - Recalled product administered [Unknown]
  - Pyrexia [Recovered/Resolved]
  - Injection site pain [Recovered/Resolved]
  - Pain in extremity [Unknown]
